FAERS Safety Report 8601999-X (Version None)
Quarter: 2012Q3

REPORT INFORMATION
  Report Type: 
  Country: None (occurrence: None)
  Receive Date: 20120817
  Receipt Date: 20120810
  Transmission Date: 20120928
  Serious: Yes (Other)
  Sender: FDA-Public Use
  Company Number: US-PFIZER INC-2012165562

PATIENT
  Age: 41 Year
  Sex: Male
  Weight: 83.9 kg

DRUGS (6)
  1. SEROQUEL [Suspect]
     Indication: SCHIZOPHRENIA
  2. VIAGRA [Suspect]
     Indication: LOSS OF LIBIDO
     Dosage: UNK, AS NEEDED
     Route: 048
  3. ZOLOFT [Suspect]
     Indication: AGITATION
     Dosage: UNK
  4. SEROQUEL [Suspect]
     Indication: SLEEP DISORDER
     Dosage: UNK
  5. LEVITRA [Suspect]
     Dosage: UNK
  6. CIALIS [Suspect]
     Dosage: UNK

REACTIONS (5)
  - SCHIZOPHRENIA, PARANOID TYPE [None]
  - FEELING ABNORMAL [None]
  - FLAT AFFECT [None]
  - LOSS OF LIBIDO [None]
  - DRUG INEFFECTIVE [None]
